FAERS Safety Report 5031870-4 (Version None)
Quarter: 2006Q2

REPORT INFORMATION
  Report Type: 
  Country: None (occurrence: None)
  Receive Date: 20060616
  Receipt Date: 20060531
  Transmission Date: 20061013
  Serious: Yes (Hospitalization)
  Sender: FDA-Public Use
  Company Number: DSA_28273_2006

PATIENT
  Age: 75 Year
  Sex: Male

DRUGS (10)
  1. RENIVACE [Suspect]
     Dosage: 5 MG Q DAY PO
     Route: 048
  2. ASPIRIN [Concomitant]
  3. DEPAS [Concomitant]
  4. DIOVAN /01319601/ [Concomitant]
  5. HERBESSER [Concomitant]
  6. SELBEX [Concomitant]
  7. SIGMART [Concomitant]
  8. ZANTAC [Concomitant]
  9. ALLOPURINOL [Concomitant]
  10. YODEL-S [Concomitant]

REACTIONS (2)
  - ANAEMIA [None]
  - GASTROINTESTINAL HAEMORRHAGE [None]
